FAERS Safety Report 9306430 (Version 2)
Quarter: 2013Q2

REPORT INFORMATION
  Report Type: Spontaneous
  Country: US (occurrence: US)
  Receive Date: 20130523
  Receipt Date: 20130528
  Transmission Date: 20140414
  Serious: No
  Sender: FDA-Public Use
  Company Number: US-009507513-1305USA009549

PATIENT
  Age: 19 Year
  Sex: Female
  Weight: 84.35 kg

DRUGS (1)
  1. NEXPLANON [Suspect]
     Indication: CONTRACEPTION
     Dosage: 1 DF, UNK
     Route: 059
     Dates: start: 20121129

REACTIONS (3)
  - False negative pregnancy test [Unknown]
  - Unintended pregnancy [Unknown]
  - Weight increased [Unknown]
